FAERS Safety Report 23870704 (Version 4)
Quarter: 2024Q2

REPORT INFORMATION
  Report Type: Report from Study
  Country: DE (occurrence: DE)
  Receive Date: 20240518
  Receipt Date: 20240528
  Transmission Date: 20240716
  Serious: Yes (Hospitalization)
  Sender: FDA-Public Use
  Company Number: DE-SA-SAC20230519001177

PATIENT
  Age: 83 Year
  Sex: Female
  Weight: 74 kg

DRUGS (49)
  1. ISATUXIMAB [Suspect]
     Active Substance: ISATUXIMAB
     Indication: Plasma cell myeloma refractory
     Dosage: 690 MG, QW (4 TIMES: 1,8,15,22)
     Route: 065
     Dates: start: 20230426, end: 20230517
  2. ISATUXIMAB [Suspect]
     Active Substance: ISATUXIMAB
     Dosage: 690 MG, QW
     Route: 065
     Dates: start: 20230524, end: 20230607
  3. ISATUXIMAB [Suspect]
     Active Substance: ISATUXIMAB
     Dosage: 690 MG, BIW
     Route: 065
     Dates: start: 20230621, end: 20230705
  4. ISATUXIMAB [Suspect]
     Active Substance: ISATUXIMAB
     Dosage: 690 MG, BIW
     Dates: start: 20230719, end: 20230802
  5. ISATUXIMAB [Suspect]
     Active Substance: ISATUXIMAB
     Dosage: 690 MG, BIW
     Dates: start: 20230816, end: 20230830
  6. ISATUXIMAB [Suspect]
     Active Substance: ISATUXIMAB
     Dosage: 690 MG, BIW
     Route: 065
     Dates: start: 20230913, end: 20230927
  7. ISATUXIMAB [Suspect]
     Active Substance: ISATUXIMAB
     Dosage: 690 MG, BIW
     Route: 065
     Dates: start: 20231011, end: 20231011
  8. ISATUXIMAB [Suspect]
     Active Substance: ISATUXIMAB
     Dosage: 690 MG, BIW
     Route: 065
     Dates: start: 20231108, end: 20231122
  9. ISATUXIMAB [Suspect]
     Active Substance: ISATUXIMAB
     Dosage: 690 MG, BIW
     Route: 065
     Dates: start: 20231206, end: 20231206
  10. ISATUXIMAB [Suspect]
     Active Substance: ISATUXIMAB
     Dosage: 690 MG, BIW
     Dates: start: 20240103, end: 20240117
  11. ISATUXIMAB [Suspect]
     Active Substance: ISATUXIMAB
     Dosage: 690 MG, BIW
     Dates: start: 20240131, end: 20240206
  12. ISATUXIMAB [Suspect]
     Active Substance: ISATUXIMAB
     Dosage: 690 MG, BIW
     Dates: start: 20240214, end: 20240215
  13. ISATUXIMAB [Suspect]
     Active Substance: ISATUXIMAB
     Dosage: 690 MG, BIW
     Dates: start: 20240228, end: 20240313
  14. DEXAMETHASONE [Suspect]
     Active Substance: DEXAMETHASONE
     Indication: Plasma cell myeloma refractory
     Dosage: 20 MG, 6 TIMES
     Dates: start: 20230426, end: 20230511
  15. DEXAMETHASONE [Suspect]
     Active Substance: DEXAMETHASONE
     Dosage: 20 MG (6 TIMES 1, 2, 8, 9, 15,16
     Route: 065
     Dates: start: 20230524, end: 20230608
  16. DEXAMETHASONE [Suspect]
     Active Substance: DEXAMETHASONE
     Dosage: 20 MG (8 TIMES 1, 2, 8, 9, 15,16, 22, 23)
     Route: 065
     Dates: start: 20230621, end: 20230713
  17. DEXAMETHASONE [Suspect]
     Active Substance: DEXAMETHASONE
     Dosage: 20 MG,(8 TIMES 1,2,8,9,15,16,22,23)
     Dates: start: 20230719, end: 20230810
  18. DEXAMETHASONE [Suspect]
     Active Substance: DEXAMETHASONE
     Dosage: 20 MG(6TIMES 1,2,8,9,15,16)
     Dates: start: 20230816, end: 20230831
  19. DEXAMETHASONE [Suspect]
     Active Substance: DEXAMETHASONE
     Dosage: 8 MG (6TIMES 1,2,8,9,15,16)
     Route: 065
     Dates: start: 20230913, end: 20230928
  20. DEXAMETHASONE [Suspect]
     Active Substance: DEXAMETHASONE
     Dosage: 8 MG (4 TIMES 1,2,8,9)
     Route: 065
     Dates: start: 20231011, end: 20231019
  21. DEXAMETHASONE [Suspect]
     Active Substance: DEXAMETHASONE
     Dosage: 8 MG (6TIMES 1,2,8,9,15,16)
     Route: 065
     Dates: start: 20231108, end: 20231123
  22. DEXAMETHASONE [Suspect]
     Active Substance: DEXAMETHASONE
     Dosage: 8 MG (6TIMES 1,2,8,9)
     Route: 065
     Dates: start: 20231206, end: 20231215
  23. DEXAMETHASONE [Suspect]
     Active Substance: DEXAMETHASONE
     Dosage: 8 MG, 6 TIMES A DAY
     Dates: start: 20240103, end: 20240118
  24. DEXAMETHASONE [Suspect]
     Active Substance: DEXAMETHASONE
     Dosage: 8 MG (6 TIMES A DAY )
     Dates: start: 20240131, end: 20240206
  25. DEXAMETHASONE [Suspect]
     Active Substance: DEXAMETHASONE
     Dosage: 8 MG 8 TIMES DAY 1,2,8,9,15,16,22,23
     Dates: start: 20240214, end: 20240215
  26. DEXAMETHASONE [Suspect]
     Active Substance: DEXAMETHASONE
     Dosage: 8 MG 8 TIMES DAY 1,2,8,9,15,16,22,23
     Dates: start: 20240228, end: 20240314
  27. CARFILZOMIB [Suspect]
     Active Substance: CARFILZOMIB
     Indication: Plasma cell myeloma refractory
     Dosage: 34 MG, 2 TIMES 1,2
     Dates: start: 20230426, end: 20230427
  28. CARFILZOMIB [Suspect]
     Active Substance: CARFILZOMIB
     Dosage: 96 MG, 4 TIMES 8,9,15,16
     Dates: start: 20230503, end: 20230511
  29. CARFILZOMIB [Suspect]
     Active Substance: CARFILZOMIB
     Dosage: 96 MG (6 TIMES 1,2,8,9,15,16)
     Route: 065
     Dates: start: 20230524, end: 20230608
  30. CARFILZOMIB [Suspect]
     Active Substance: CARFILZOMIB
     Dosage: 96 MG (6 TIMES 1,2,8,9,15,16)
     Route: 065
     Dates: start: 20230621, end: 20230706
  31. CARFILZOMIB [Suspect]
     Active Substance: CARFILZOMIB
     Dosage: 96 MG (6 TIMES 1,2,8,9,15,16)
     Dates: start: 20230719, end: 20230803
  32. CARFILZOMIB [Suspect]
     Active Substance: CARFILZOMIB
     Dosage: 96 MG(6 TIMES 1,2,8,9,15,16)
     Dates: start: 20230816, end: 20230831
  33. CARFILZOMIB [Suspect]
     Active Substance: CARFILZOMIB
     Dosage: 96 MG(6 TIMES 1,2,8,9,15,16)
     Route: 065
     Dates: start: 20230913, end: 20230928
  34. CARFILZOMIB [Suspect]
     Active Substance: CARFILZOMIB
     Dosage: 96 MG(4 TIMES 1,2,8,9)
     Route: 065
     Dates: start: 20231011, end: 20231019
  35. CARFILZOMIB [Suspect]
     Active Substance: CARFILZOMIB
     Dosage: 96 MG(6 TIMES 1,2,8,9,15,16)
     Route: 065
     Dates: start: 20231108, end: 20231123
  36. CARFILZOMIB [Suspect]
     Active Substance: CARFILZOMIB
     Dosage: 96 MG (4 TIMES 1,2,8,9)
     Route: 065
     Dates: start: 20231206, end: 20231215
  37. CARFILZOMIB [Suspect]
     Active Substance: CARFILZOMIB
     Dosage: 96 MG, ( 6 TIMES A DAY)
     Dates: start: 20240103, end: 20240118
  38. CARFILZOMIB [Suspect]
     Active Substance: CARFILZOMIB
     Dosage: 96 MG, ( 6 TIMES A DAY)
     Dates: start: 20240131, end: 20240206
  39. CARFILZOMIB [Suspect]
     Active Substance: CARFILZOMIB
     Dosage: 96 MG, ( 6 TIMES A DAY)
     Dates: start: 20240214, end: 20240215
  40. CARFILZOMIB [Suspect]
     Active Substance: CARFILZOMIB
     Dosage: 96 MG, ( 6 TIMES A DAY)
     Dates: start: 20240228, end: 20240314
  41. DEXTROSE [Concomitant]
     Active Substance: DEXTROSE\DEXTROSE MONOHYDRATE
     Dosage: UNK
     Dates: start: 20230426
  42. AREDIA [Concomitant]
     Active Substance: PAMIDRONATE DISODIUM
     Indication: Supportive care
     Dosage: UNK
     Dates: start: 20130926
  43. OXYCODONE [Concomitant]
     Active Substance: OXYCODONE\OXYCODONE HYDROCHLORIDE
     Indication: Polyneuropathy
     Dosage: UNK
     Dates: start: 2013
  44. LYRICA [Concomitant]
     Active Substance: PREGABALIN
     Indication: Polyneuropathy
     Dosage: UNK
     Dates: start: 201310
  45. CLEMASTINE [Concomitant]
     Active Substance: CLEMASTINE
     Indication: Prophylaxis
     Dosage: UNK
     Dates: start: 20230426
  46. MONTELUKAST [Concomitant]
     Active Substance: MONTELUKAST SODIUM
     Indication: Prophylaxis
     Dosage: UNK
     Dates: start: 20230426
  47. MOVICOL [Concomitant]
     Active Substance: POLYETHYLENE GLYCOL 3350\POTASSIUM CHLORIDE\SODIUM BICARBONATE\SODIUM CHLORIDE
     Indication: Constipation
     Dosage: UNK
     Dates: start: 20230831
  48. PREGABALIN [Concomitant]
     Active Substance: PREGABALIN
     Dosage: UNK
     Route: 065
     Dates: start: 20230906
  49. PANTOPRAZOLE [Concomitant]
     Active Substance: PANTOPRAZOLE
     Dosage: UNK
     Dates: start: 20141120

REACTIONS (17)
  - Hypertension [Recovered/Resolved]
  - Type 2 diabetes mellitus [Recovered/Resolved]
  - Headache [Recovered/Resolved]
  - Anaemia [Unknown]
  - Thrombocytopenia [Recovered/Resolved]
  - Thrombocytopenia [Recovered/Resolved]
  - Anaemia [Recovered/Resolved]
  - Anaemia [Recovered/Resolved]
  - Blood glucose increased [Unknown]
  - Infusion related reaction [Recovered/Resolved]
  - Epistaxis [Recovered/Resolved]
  - Headache [Recovered/Resolved]
  - Abdominal pain upper [Unknown]
  - Vomiting [Recovered/Resolved]
  - Nausea [Recovered/Resolved]
  - Abdominal pain [Recovered/Resolved]
  - Diarrhoea [Recovered/Resolved]

NARRATIVE: CASE EVENT DATE: 20230426
